FAERS Safety Report 13227906 (Version 1)
Quarter: 2017Q1

REPORT INFORMATION
  Report Type: Spontaneous
  Country: CA (occurrence: CA)
  Receive Date: 20170213
  Receipt Date: 20170213
  Transmission Date: 20170428
  Serious: Yes (Other)
  Sender: FDA-Public Use
  Company Number: CA-GLAXOSMITHKLINE-CA2016GSK189720

PATIENT
  Sex: Female

DRUGS (1)
  1. VENTOLIN [Suspect]
     Active Substance: ALBUTEROL SULFATE
     Indication: PRODUCT USED FOR UNKNOWN INDICATION
     Dosage: UNK

REACTIONS (7)
  - Gastroenteritis [Unknown]
  - Micturition urgency [Unknown]
  - Abdominal pain [Unknown]
  - Dysuria [Unknown]
  - Pyelonephritis [Unknown]
  - Renal disorder [Unknown]
  - Urinary tract infection [Unknown]
